FAERS Safety Report 4914095-X (Version None)
Quarter: 2006Q1

REPORT INFORMATION
  Report Type: 
  Country: None (occurrence: None)
  Receive Date: 20060210
  Receipt Date: 20060203
  Transmission Date: 20060701
  Serious: Yes (Hospitalization)
  Sender: FDA-Public Use
  Company Number: A0592364A

PATIENT
  Age: 48 Year
  Sex: Male
  Weight: 108.3643 kg

DRUGS (3)
  1. COMPAZINE [Suspect]
     Indication: NAUSEA
  2. INTERFERON ALFA-2B INJECTION (INTERFERON ALFA-2B) [Suspect]
     Indication: HEPATITIS C
     Dosage: SUBCUTANEOUS
     Route: 058
     Dates: start: 20060106
  3. TRIBAVIRIN (RIBAVIRIN) [Suspect]
     Indication: HEPATITIS C
     Dosage: ORAL
     Route: 048
     Dates: start: 20060106

REACTIONS (7)
  - BODY TEMPERATURE INCREASED [None]
  - CATATONIA [None]
  - CHILLS [None]
  - CONVULSION [None]
  - DIARRHOEA [None]
  - HEADACHE [None]
  - WEIGHT DECREASED [None]
